FAERS Safety Report 13921595 (Version 1)
Quarter: 2017Q3

REPORT INFORMATION
  Report Type: Other
  Country: FR (occurrence: FR)
  Receive Date: 20170830
  Receipt Date: 20170830
  Transmission Date: 20171127
  Serious: Yes (Hospitalization, Other)
  Sender: FDA-Public Use
  Company Number: FR-ASTELLAS-2017US034241

PATIENT
  Age: 71 Year
  Sex: Male

DRUGS (13)
  1. ADVAGRAF [Suspect]
     Active Substance: TACROLIMUS
     Indication: LIVER TRANSPLANT
     Route: 048
     Dates: end: 20170717
  2. PREVISCAN                          /00789001/ [Concomitant]
     Active Substance: FLUINDIONE
     Indication: ATRIAL FIBRILLATION
     Route: 048
     Dates: end: 20170717
  3. ALFACALCIDOL [Concomitant]
     Active Substance: ALFACALCIDOL
     Indication: HYPERPARATHYROIDISM SECONDARY
     Dosage: 0.25 ?G, TWICE DAILY
     Route: 048
  4. CRESTOR [Concomitant]
     Active Substance: ROSUVASTATIN CALCIUM
     Indication: DYSLIPIDAEMIA
     Route: 048
  5. ISOPTINE [Concomitant]
     Active Substance: VERAPAMIL HYDROCHLORIDE
     Indication: HYPERTENSION
     Route: 048
  6. LEVOTHYROX [Concomitant]
     Active Substance: LEVOTHYROXINE
     Indication: HYPERTHYROIDISM
     Route: 048
  7. ADENURIC [Concomitant]
     Active Substance: FEBUXOSTAT
     Indication: GOUT
     Route: 048
  8. PARIET [Concomitant]
     Active Substance: RABEPRAZOLE SODIUM
     Indication: OESOPHAGITIS
     Route: 048
  9. ADVAGRAF [Suspect]
     Active Substance: TACROLIMUS
     Route: 048
     Dates: start: 20170726
  10. CELLCEPT [Concomitant]
     Active Substance: MYCOPHENOLATE MOFETIL\MYCOPHENOLATE MOFETIL HYDROCHLORIDE
     Indication: LIVER TRANSPLANT
     Route: 048
  11. FUROSEMIDE. [Suspect]
     Active Substance: FUROSEMIDE
     Indication: HYPERTENSION
     Dosage: UNK, UNKNOWN FREQ.
     Route: 048
     Dates: end: 20170716
  12. LANTUS [Concomitant]
     Active Substance: INSULIN GLARGINE
     Indication: DIABETES MELLITUS
     Dosage: UNK UNK, UNKNOWN FREQ.
     Route: 058
  13. PREVISCAN                          /00789001/ [Concomitant]
     Active Substance: FLUINDIONE
     Dosage: UNK UNK, UNKNOWN FREQ.
     Route: 065
     Dates: start: 20170726

REACTIONS (13)
  - Dehydration [Unknown]
  - Diarrhoea [Unknown]
  - Pleural effusion [Recovering/Resolving]
  - Vomiting [Unknown]
  - Neisseria test positive [Unknown]
  - Acute kidney injury [Recovered/Resolved]
  - Human rhinovirus test positive [Unknown]
  - Enterovirus test positive [Unknown]
  - Pulmonary mass [Unknown]
  - Metabolic acidosis [Unknown]
  - Diarrhoea [Recovering/Resolving]
  - Overdose [Unknown]
  - Hypoxia [Recovering/Resolving]

NARRATIVE: CASE EVENT DATE: 20170716
